FAERS Safety Report 21728087 (Version 2)
Quarter: 2023Q1

REPORT INFORMATION
  Report Type: Report from Study
  Country: US (occurrence: US)
  Receive Date: 20221214
  Receipt Date: 20230213
  Transmission Date: 20230418
  Serious: Yes (Disabling, Other)
  Sender: FDA-Public Use
  Company Number: US-HORIZON THERAPEUTICS-HZN-2021-004531

PATIENT

DRUGS (3)
  1. TEPEZZA [Suspect]
     Active Substance: TEPROTUMUMAB-TRBW
     Indication: Endocrine ophthalmopathy
     Dosage: FIRST INFUSION
     Route: 042
     Dates: start: 20201222
  2. TEPEZZA [Suspect]
     Active Substance: TEPROTUMUMAB-TRBW
     Indication: Basedow^s disease
     Dosage: 20 MG/KG (5TH INFUSION)
     Route: 042
     Dates: start: 2021
  3. TEPEZZA [Suspect]
     Active Substance: TEPROTUMUMAB-TRBW
     Dosage: 8TH INFUSION 20MG/KG
     Route: 042
     Dates: start: 20210821, end: 20210821

REACTIONS (12)
  - Deafness permanent [Not Recovered/Not Resolved]
  - Disability [Unknown]
  - Arthralgia [Unknown]
  - Hot flush [Unknown]
  - Tinnitus [Unknown]
  - Fatigue [Unknown]
  - Injury [Unknown]
  - Pain [Unknown]
  - Anxiety [Unknown]
  - General physical health deterioration [Unknown]
  - Economic problem [Unknown]
  - Concomitant disease aggravated [Unknown]
